FAERS Safety Report 14672489 (Version 10)
Quarter: 2020Q2

REPORT INFORMATION
  Report Type: Spontaneous
  Country: US (occurrence: US)
  Receive Date: 20180323
  Receipt Date: 20200527
  Transmission Date: 20200713
  Serious: Yes (Hospitalization, Other)
  Sender: FDA-Public Use
  Company Number: US-PFIZER INC-2018120143

PATIENT
  Age: 53 Year
  Sex: Female

DRUGS (2)
  1. XELJANZ XR [Suspect]
     Active Substance: TOFACITINIB CITRATE
     Indication: RHEUMATOID ARTHRITIS
     Dosage: 11 MG, DAILY
     Route: 048
     Dates: start: 20170905
  2. XELJANZ XR [Suspect]
     Active Substance: TOFACITINIB CITRATE
     Dosage: 11 MG, 1X/DAY (TAKE 1 TABLET BY MOUTH ONCE DAILY)
     Route: 048
     Dates: start: 20180206

REACTIONS (16)
  - Gastric disorder [Unknown]
  - Diarrhoea [Unknown]
  - Breast pain [Unknown]
  - Clostridium difficile colitis [Recovered/Resolved]
  - Therapeutic product effect incomplete [Unknown]
  - Abdominal pain upper [Unknown]
  - Skin burning sensation [Unknown]
  - Psoriasis [Recovering/Resolving]
  - Ankle fracture [Unknown]
  - Blood cholesterol increased [Unknown]
  - Seasonal allergy [Unknown]
  - Lower limb fracture [Unknown]
  - Sinusitis [Unknown]
  - Abdominal pain [Unknown]
  - Pain [Unknown]
  - Alopecia [Unknown]

NARRATIVE: CASE EVENT DATE: 2018
